FAERS Safety Report 16311911 (Version 1)
Quarter: 2019Q2

REPORT INFORMATION
  Report Type: Report from Study
  Country: None (occurrence: US)
  Receive Date: 20190514
  Receipt Date: 20190514
  Transmission Date: 20190711
  Serious: Yes (Other)
  Sender: FDA-Public Use
  Company Number: US-ABBVIE-19K-163-2777409-00

PATIENT
  Age: 62 Year
  Sex: Male

DRUGS (2)
  1. HUMIRA [Suspect]
     Active Substance: ADALIMUMAB
     Indication: PSORIASIS
     Route: 058
     Dates: end: 201809
  2. COSENTYX [Concomitant]
     Active Substance: SECUKINUMAB
     Indication: PRODUCT USED FOR UNKNOWN INDICATION

REACTIONS (3)
  - Drug ineffective [Recovering/Resolving]
  - Renal failure [Unknown]
  - Renal disorder [Unknown]

NARRATIVE: CASE EVENT DATE: 2011
